FAERS Safety Report 5227278-9 (Version None)
Quarter: 2007Q1

REPORT INFORMATION
  Report Type: 
  Country: None (occurrence: None)
  Receive Date: 20070202
  Receipt Date: 20070122
  Transmission Date: 20070707
  Serious: Yes (Hospitalization)
  Sender: FDA-Public Use
  Company Number: AU-ROCHE-474234

PATIENT
  Age: 60 Year
  Sex: Male

DRUGS (4)
  1. CAPECITABINE [Suspect]
     Dosage: ADMINISTERED IN 2 DAILY DIVIDED DOSES ON DAYS 1-14 OF A 3 WEEK CYCLE
     Route: 048
     Dates: start: 20060818
  2. BEVACIZUMAB [Suspect]
     Dosage: ADMINISTERED ON DAY 1 OF EACH 3 WEEK CYCLE
     Route: 042
     Dates: start: 20060818
  3. MITOMYCIN-C BULK POWDER [Suspect]
     Route: 042
     Dates: start: 20060818
  4. ASPIRIN [Concomitant]
     Route: 048
     Dates: start: 20031015

REACTIONS (4)
  - DRUG EFFECT DECREASED [None]
  - LOCALISED INFECTION [None]
  - RENAL IMPAIRMENT [None]
  - SKIN CHAPPED [None]
